FAERS Safety Report 7255961-2 (Version None)
Quarter: 2011Q1

REPORT INFORMATION
  Report Type: 
  Country: None (occurrence: None)
  Receive Date: 20110129
  Receipt Date: 20100517
  Transmission Date: 20110831
  Serious: No
  Sender: FDA-Public Use
  Company Number: US-ABBOTT-10P-163-0645595-00

PATIENT
  Sex: Male
  Weight: 122.13 kg

DRUGS (4)
  1. HUMIRA [Suspect]
     Indication: PSORIASIS
  2. HUMIRA [Suspect]
     Indication: PSORIATIC ARTHROPATHY
     Route: 058
     Dates: start: 20100421
  3. NEXIUM [Concomitant]
     Indication: GASTROOESOPHAGEAL REFLUX DISEASE
  4. SLEEPING AIDE [Concomitant]
     Indication: SLEEP DISORDER

REACTIONS (4)
  - VERTIGO [None]
  - VOMITING [None]
  - NAUSEA [None]
  - EAR INFECTION [None]
